FAERS Safety Report 17137535 (Version 1)
Quarter: 2019Q4

REPORT INFORMATION
  Report Type: Spontaneous
  Country: CN (occurrence: CN)
  Receive Date: 20191210
  Receipt Date: 20191210
  Transmission Date: 20200122
  Serious: Yes (Hospitalization)
  Sender: FDA-Public Use
  Company Number: CN-BAXTER-2019BAX024852

PATIENT
  Age: 54 Year
  Sex: Female
  Weight: 51 kg

DRUGS (6)
  1. EPIRUBICIN HYDROCHLORIDE. [Suspect]
     Active Substance: EPIRUBICIN HYDROCHLORIDE
     Indication: BREAST CANCER
     Dosage: EPIRUBICIN + WATER FOR INJECTION 100 ML
     Route: 041
     Dates: start: 20190918, end: 20190918
  2. 5% GLUCOSE  INJECTION [Suspect]
     Active Substance: DEXTROSE
     Indication: MEDICATION DILUTION
     Dosage: AO NUO XIAN 1000 MG + 5% GLUCOSE
     Route: 041
     Dates: start: 20190918, end: 20190918
  3. ENDOXAN [Suspect]
     Active Substance: CYCLOPHOSPHAMIDE
     Indication: BREAST CANCER
     Dosage: ENDOXAN + 0.9% NACL 500 ML
     Route: 041
     Dates: start: 20190918, end: 20190918
  4. 0.9% SODIUM CHLORIDE INJECTION [Suspect]
     Active Substance: SODIUM CHLORIDE
     Indication: MEDICATION DILUTION
     Dosage: ENDOXAN 0.85 G + 0.9% NACL
     Route: 041
     Dates: start: 20190918, end: 20190918
  5. AO NUO XIAN [Suspect]
     Active Substance: DEXRAZOXANE
     Indication: BREAST CANCER
     Dosage: AO NUO XIAN + 5% GLUCOSE 75 ML
     Route: 041
     Dates: start: 20190918, end: 20190918
  6. STERILE WATER FOR INJECTION [Suspect]
     Active Substance: WATER
     Indication: MEDICATION DILUTION
     Dosage: EPIRUBICIN 110 MG + WATER FOR INJECTION
     Route: 041
     Dates: start: 20190918, end: 20190918

REACTIONS (1)
  - Bone marrow failure [Recovered/Resolved]

NARRATIVE: CASE EVENT DATE: 20190928
